FAERS Safety Report 22134777 (Version 1)
Quarter: 2023Q1

REPORT INFORMATION
  Report Type: Spontaneous
  Country: US (occurrence: None)
  Receive Date: 20230322
  Receipt Date: 20230322
  Transmission Date: 20230417
  Serious: Yes (Hospitalization)
  Sender: FDA-Public Use
  Company Number: None

PATIENT
  Age: 48 Year
  Sex: Female

DRUGS (7)
  1. VERZENIO [Suspect]
     Active Substance: ABEMACICLIB
     Indication: Breast cancer female
     Dosage: FREQUENCY : TWICE A DAY;?
     Route: 048
     Dates: start: 2023
  2. ASPIRIN LOW TAB EC [Concomitant]
  3. BUTAL/APAP TAB [Concomitant]
  4. LETROZOLE [Concomitant]
     Active Substance: LETROZOLE
  5. PRILOSEC OTC TAB [Concomitant]
  6. VITAMIN D3 CAP [Concomitant]
  7. ZINC TAB [Concomitant]

REACTIONS (1)
  - Abdominal pain [None]

NARRATIVE: CASE EVENT DATE: 20230103
